FAERS Safety Report 21123965 (Version 1)
Quarter: 2022Q3

REPORT INFORMATION
  Report Type: Spontaneous
  Country: CN (occurrence: CN)
  Receive Date: 20220725
  Receipt Date: 20220725
  Transmission Date: 20221026
  Serious: Yes (Other)
  Sender: FDA-Public Use
  Company Number: CN-ABBVIE-22K-035-4477251-00

PATIENT
  Age: 62 Year
  Sex: Female
  Weight: 51 kg

DRUGS (4)
  1. VENETOCLAX [Suspect]
     Active Substance: VENETOCLAX
     Indication: Acute myeloid leukaemia
     Route: 048
     Dates: start: 20220626, end: 20220711
  2. AZACITIDINE [Suspect]
     Active Substance: AZACITIDINE
     Indication: Acute myeloid leukaemia
     Route: 058
     Dates: start: 20220626, end: 20220702
  3. OMACETAXINE MEPESUCCINATE [Suspect]
     Active Substance: OMACETAXINE MEPESUCCINATE
     Indication: Acute myeloid leukaemia
     Route: 041
     Dates: start: 20220626, end: 20220702
  4. OMACETAXINE [Suspect]
     Active Substance: OMACETAXINE
     Indication: Product used for unknown indication
     Route: 065

REACTIONS (2)
  - Myelosuppression [Not Recovered/Not Resolved]
  - Drug tolerance [Unknown]

NARRATIVE: CASE EVENT DATE: 20220101
